FAERS Safety Report 5328389-X (Version None)
Quarter: 2007Q2

REPORT INFORMATION
  Report Type: 
  Country: None (occurrence: None)
  Receive Date: 20070514
  Receipt Date: 20070503
  Transmission Date: 20071010
  Serious: Yes (Disabling, Other)
  Sender: FDA-Public Use
  Company Number: GXKR2007IT04029

PATIENT
  Age: 10 Year
  Sex: Female

DRUGS (1)
  1. LOPERAMIDE [Suspect]
     Indication: GASTROENTERITIS
     Dosage: 2 MG, ORAL
     Route: 048

REACTIONS (3)
  - BLADDER CATHETERISATION [None]
  - MICTURITION DISORDER [None]
  - URINARY RETENTION [None]
